FAERS Safety Report 16273740 (Version 2)
Quarter: 2019Q3

REPORT INFORMATION
  Report Type: Spontaneous
  Country: US (occurrence: US)
  Receive Date: 20190506
  Receipt Date: 20190722
  Transmission Date: 20191004
  Serious: Yes (Death, Other)
  Sender: FDA-Public Use
  Company Number: US-ASTRAZENECA-2018SF65545

PATIENT
  Age: 20884 Day
  Sex: Male
  Weight: 79.4 kg

DRUGS (10)
  1. NEXIUM 24HR [Suspect]
     Active Substance: ESOMEPRAZOLE MAGNESIUM
     Route: 048
  2. FAMOTIDINE. [Concomitant]
     Active Substance: FAMOTIDINE
  3. ZANTAC [Concomitant]
     Active Substance: RANITIDINE HYDROCHLORIDE
  4. TAGAMET HB [Concomitant]
     Active Substance: CIMETIDINE
  5. NEXIUM [Suspect]
     Active Substance: ESOMEPRAZOLE MAGNESIUM
     Route: 048
  6. AXID [Concomitant]
     Active Substance: NIZATIDINE
  7. NIZATIDINE. [Concomitant]
     Active Substance: NIZATIDINE
  8. PRILOSEC OTC [Suspect]
     Active Substance: OMEPRAZOLE MAGNESIUM
     Route: 048
  9. PEPCID AC [Concomitant]
     Active Substance: FAMOTIDINE
  10. RANITIDINE. [Concomitant]
     Active Substance: RANITIDINE

REACTIONS (6)
  - Renal failure [Unknown]
  - Rebound acid hypersecretion [Unknown]
  - Chronic kidney disease [Unknown]
  - Hepatomegaly [Not Recovered/Not Resolved]
  - Death [Fatal]
  - Renal injury [Unknown]

NARRATIVE: CASE EVENT DATE: 20110718
